FAERS Safety Report 25803951 (Version 1)
Quarter: 2025Q3

REPORT INFORMATION
  Report Type: Spontaneous
  Country: EU (occurrence: EU)
  Receive Date: 20250915
  Receipt Date: 20250915
  Transmission Date: 20251020
  Serious: Yes (Other)
  Sender: DR REDDYS
  Company Number: None

PATIENT
  Age: 36 Year
  Sex: Female

DRUGS (13)
  1. PREGABALIN [Suspect]
     Active Substance: PREGABALIN
     Indication: Back pain
     Dosage: 600 MILLIGRAM EVEN MORE-UP TO 2,400 MG DURING STRESS
     Route: 048
  2. PREGABALIN [Suspect]
     Active Substance: PREGABALIN
     Indication: Anxiety
     Route: 048
  3. PREGABALIN [Suspect]
     Active Substance: PREGABALIN
     Indication: Stress
  4. PREGABALIN [Suspect]
     Active Substance: PREGABALIN
     Dosage: 50 MILLIGRAM, Q2W (50 MG EVERY 14 DAYS)
  5. PREGABALIN [Suspect]
     Active Substance: PREGABALIN
     Dosage: 25 MILLIGRAM, QD (PER DAY)
  6. PREGABALIN [Suspect]
     Active Substance: PREGABALIN
  7. PREGABALIN [Suspect]
     Active Substance: PREGABALIN
  8. PREGABALIN [Suspect]
     Active Substance: PREGABALIN
  9. MIRTAZAPINE [Concomitant]
     Active Substance: MIRTAZAPINE
     Indication: Stress
     Dosage: 15 MILLIGRAM, QD
  10. MIRTAZAPINE [Concomitant]
     Active Substance: MIRTAZAPINE
     Indication: Anxiety
  11. MIRTAZAPINE [Concomitant]
     Active Substance: MIRTAZAPINE
     Indication: Insomnia
  12. SERTRALINE [Concomitant]
     Active Substance: SERTRALINE HYDROCHLORIDE
     Indication: Stress
     Dosage: 150 MILLIGRAM, QD
  13. SERTRALINE [Concomitant]
     Active Substance: SERTRALINE HYDROCHLORIDE
     Indication: Anxiety

REACTIONS (9)
  - Toxicity to various agents [Recovered/Resolved]
  - Drug dependence [Unknown]
  - Condition aggravated [Unknown]
  - Rebound effect [Unknown]
  - Intentional product use issue [Unknown]
  - Anxiety [Unknown]
  - Back pain [Recovered/Resolved]
  - Insomnia [Unknown]
  - Drug withdrawal syndrome [Unknown]
